FAERS Safety Report 9619696 (Version 4)
Quarter: 2013Q4

REPORT INFORMATION
  Report Type: Report from Study
  Country: DE (occurrence: DE)
  Receive Date: 20131014
  Receipt Date: 20131205
  Transmission Date: 20140711
  Serious: Yes (Hospitalization)
  Sender: FDA-Public Use
  Company Number: DE-ABBVIE-13P-062-1155100-00

PATIENT
  Age: 51 Year
  Sex: Female

DRUGS (6)
  1. HUMIRA [Suspect]
     Indication: HIDRADENITIS
     Route: 058
     Dates: start: 20130524, end: 20130927
  2. BISOPROLOL [Concomitant]
     Indication: HYPERTENSION
     Route: 048
     Dates: start: 201204, end: 20130920
  3. BISOPROLOL [Concomitant]
     Indication: PALPITATIONS
  4. VALSARTAN + HIDROCLOROTIAZIDA [Concomitant]
     Indication: HYPERTENSION
     Route: 048
     Dates: start: 201204
  5. DEPO-CLINOVIR [Concomitant]
     Indication: CONTRACEPTION
     Route: 058
     Dates: start: 20120618
  6. SKINSAN [Concomitant]
     Indication: HIDRADENITIS
     Dosage: 1 APPLICATION
     Route: 061
     Dates: start: 20120917

REACTIONS (3)
  - Respiratory distress [Recovered/Resolved]
  - Palpitations [Recovered/Resolved]
  - Hypertension [Recovered/Resolved]
